FAERS Safety Report 9760345 (Version 1)
Quarter: 2013Q4

REPORT INFORMATION
  Report Type: Spontaneous
  Country: US (occurrence: US)
  Receive Date: 20131216
  Receipt Date: 20131216
  Transmission Date: 20140711
  Serious: No
  Sender: FDA-Public Use
  Company Number: US-GILEAD-2010-0029370

PATIENT
  Sex: Male
  Weight: 108.86 kg

DRUGS (22)
  1. LETAIRIS [Suspect]
     Indication: PULMONARY ARTERIAL HYPERTENSION
     Route: 048
     Dates: start: 20100430
  2. BACTRIM DS [Concomitant]
  3. GEMFIBROZIL [Concomitant]
  4. ZOCOR [Concomitant]
  5. LASIX [Concomitant]
  6. MAVIK [Concomitant]
  7. PREDNISONE [Concomitant]
  8. HYTRIN [Concomitant]
  9. METFORMIN [Concomitant]
  10. MAG-OX [Concomitant]
  11. NEXIUM [Concomitant]
  12. KLOR-CON [Concomitant]
  13. SPIRIVA [Concomitant]
  14. FISH OIL [Concomitant]
  15. WARFARIN [Concomitant]
  16. MULTIVITAMIN [Concomitant]
  17. RANEXA [Concomitant]
  18. ADULT ASPIRIN [Concomitant]
  19. CALCIUM [Concomitant]
  20. VITAMIN B-6 [Concomitant]
  21. VITAMIN C [Concomitant]
  22. REVATIO [Concomitant]

REACTIONS (1)
  - Dizziness [Unknown]
